FAERS Safety Report 5556756-8 (Version None)
Quarter: 2007Q4

REPORT INFORMATION
  Report Type: 
  Country: None (occurrence: None)
  Receive Date: 20071128
  Receipt Date: 20070925
  Transmission Date: 20080405
  Serious: Yes (Other)
  Sender: FDA-Public Use
  Company Number: CIP07001943

PATIENT
  Age: 66 Year
  Sex: Female

DRUGS (11)
  1. ACTONEL [Suspect]
     Indication: OSTEOPOROSIS
     Dates: start: 20050720, end: 20060925
  2. PREDNISONE TAB [Suspect]
     Indication: RHEUMATOID ARTHRITIS
     Dosage: 10 MG, DAILY, ORAL; 5 MG, DAILY, ORAL; 3 MG, DAILY, ORAL; 7.5 MG, DAILY, ORAL
     Route: 048
     Dates: start: 20040501
  3. PREDNISONE TAB [Suspect]
     Indication: RHEUMATOID ARTHRITIS
     Dosage: 10 MG, DAILY, ORAL; 5 MG, DAILY, ORAL; 3 MG, DAILY, ORAL; 7.5 MG, DAILY, ORAL
     Route: 048
     Dates: start: 20050415
  4. PREDNISONE TAB [Suspect]
     Indication: RHEUMATOID ARTHRITIS
     Dosage: 10 MG, DAILY, ORAL; 5 MG, DAILY, ORAL; 3 MG, DAILY, ORAL; 7.5 MG, DAILY, ORAL
     Route: 048
     Dates: start: 20051028
  5. PREDNISONE TAB [Suspect]
     Indication: RHEUMATOID ARTHRITIS
     Dosage: 10 MG, DAILY, ORAL; 5 MG, DAILY, ORAL; 3 MG, DAILY, ORAL; 7.5 MG, DAILY, ORAL
     Route: 048
     Dates: start: 20060710
  6. PREDNISONE TAB [Suspect]
     Indication: RHEUMATOID ARTHRITIS
     Dosage: 10 MG, DAILY, ORAL; 5 MG, DAILY, ORAL; 3 MG, DAILY, ORAL; 7.5 MG, DAILY, ORAL
     Route: 048
     Dates: start: 20060814
  7. HYDROCHLOROTHIAZIDE [Concomitant]
  8. ASPIRIN [Concomitant]
  9. ASCORBIC ACID [Concomitant]
  10. VITAMINS NOS (VITAMINS NOS) [Concomitant]
  11. PLAQUENIL [Concomitant]

REACTIONS (12)
  - ABSCESS JAW [None]
  - APHTHOUS STOMATITIS [None]
  - BONE DISORDER [None]
  - CELLULITIS [None]
  - ERYTHEMA [None]
  - FACIAL PAIN [None]
  - JOINT RANGE OF MOTION DECREASED [None]
  - LOOSE TOOTH [None]
  - OSTEOMYELITIS [None]
  - OSTEONECROSIS [None]
  - PRIMARY SEQUESTRUM [None]
  - PURULENT DISCHARGE [None]
